FAERS Safety Report 13614974 (Version 1)
Quarter: 2017Q2

REPORT INFORMATION
  Report Type: Spontaneous
  Country: US (occurrence: US)
  Receive Date: 20170606
  Receipt Date: 20170606
  Transmission Date: 20170830
  Serious: No
  Sender: FDA-Public Use
  Company Number: US-ASTRAZENECA-2011SE52585

PATIENT
  Age: 26573 Day
  Sex: Female

DRUGS (3)
  1. NEXIUM [Suspect]
     Active Substance: ESOMEPRAZOLE MAGNESIUM
     Indication: BARRETT^S OESOPHAGUS
     Route: 048
     Dates: start: 201205, end: 201601
  2. NEXIUM [Suspect]
     Active Substance: ESOMEPRAZOLE MAGNESIUM
     Indication: GASTROOESOPHAGEAL REFLUX DISEASE
     Route: 048
     Dates: start: 201205, end: 201601
  3. NEXIUM 24HR [Suspect]
     Active Substance: ESOMEPRAZOLE MAGNESIUM
     Indication: BARRETT^S OESOPHAGUS
     Route: 048
     Dates: start: 2016, end: 201702

REACTIONS (9)
  - Inappropriate schedule of drug administration [Unknown]
  - Sleep disorder due to general medical condition, insomnia type [Unknown]
  - Drug dose omission [Unknown]
  - Dyspepsia [Unknown]
  - Product use in unapproved indication [Unknown]
  - Barrett^s oesophagus [Unknown]
  - Dysphagia [Unknown]
  - Off label use [Unknown]
  - Drug ineffective [Unknown]
